FAERS Safety Report 18217948 (Version 1)
Quarter: 2020Q3

REPORT INFORMATION
  Report Type: Spontaneous
  Country: US (occurrence: US)
  Receive Date: 20200901
  Receipt Date: 20200901
  Transmission Date: 20201103
  Serious: Yes (Hospitalization)
  Sender: FDA-Public Use
  Company Number: None

PATIENT
  Age: 75 Year
  Sex: Male
  Weight: 94 kg

DRUGS (1)
  1. ALOGLIPTIN (ALOGLIPTIN 12.5MG TAB) [Suspect]
     Active Substance: ALOGLIPTIN
     Indication: DIABETES MELLITUS
     Route: 048
     Dates: start: 20200427, end: 20200512

REACTIONS (3)
  - Blood creatinine increased [None]
  - Tubulointerstitial nephritis [None]
  - Renal failure [None]

NARRATIVE: CASE EVENT DATE: 20200512
